FAERS Safety Report 6461811-4 (Version None)
Quarter: 2009Q4

REPORT INFORMATION
  Report Type: 
  Country: None (occurrence: None)
  Receive Date: 20091130
  Receipt Date: 20091125
  Transmission Date: 20100525
  Serious: Yes (Other)
  Sender: FDA-Public Use
  Company Number: GB-MERCK-0904GBR00021

PATIENT
  Age: 26 Year
  Sex: Female
  Weight: 135 kg

DRUGS (5)
  1. JANUVIA [Suspect]
     Indication: DIABETES MELLITUS
     Route: 048
     Dates: start: 20090220, end: 20090311
  2. LANSOPRAZOLE [Concomitant]
     Indication: DYSPEPSIA
     Route: 048
  3. METFORMIN [Concomitant]
     Indication: DIABETES MELLITUS
     Route: 048
  4. ALBUTEROL [Concomitant]
     Route: 065
  5. BECLOMETHASONE DIPROPIONATE [Concomitant]
     Indication: ASTHMA

REACTIONS (1)
  - HYPOTENSION [None]
